FAERS Safety Report 22019205 (Version 2)
Quarter: 2023Q1

REPORT INFORMATION
  Report Type: Report from Study
  Country: KR (occurrence: KR)
  Receive Date: 20230222
  Receipt Date: 20230228
  Transmission Date: 20230417
  Serious: Yes (Hospitalization, Other)
  Sender: FDA-Public Use
  Company Number: KR-BRISTOL-MYERS SQUIBB COMPANY-2023-015233

PATIENT
  Age: 68 Year
  Sex: Female

DRUGS (10)
  1. ABATACEPT [Suspect]
     Active Substance: ABATACEPT
     Indication: Rheumatoid arthritis
     Dosage: 500 MG/MONTH, THERAPY DURATION: ABOUT 8 YEARS
     Route: 042
     Dates: start: 201501
  2. ABATACEPT [Suspect]
     Active Substance: ABATACEPT
     Dosage: 500 MG/MONTH, THERAPY DURATION: ABOUT 8 YEARS
     Route: 042
     Dates: start: 20191128, end: 20210323
  3. ALPRAZOLAM [Concomitant]
     Active Substance: ALPRAZOLAM
     Indication: Product used for unknown indication
     Dosage: 0.125MG*2
  4. CHOLINE ALFOSCERATE [Concomitant]
     Active Substance: CHOLINE ALFOSCERATE
     Indication: Product used for unknown indication
     Dosage: 400MG*2
  5. TRIAZOLAM [Concomitant]
     Active Substance: TRIAZOLAM
     Indication: Product used for unknown indication
     Dosage: 0.25MG*2
  6. FOLIC ACID [Concomitant]
     Active Substance: FOLIC ACID
     Indication: Product used for unknown indication
     Dosage: 1MG*1
  7. DICAMAX 1000 [Concomitant]
     Indication: Product used for unknown indication
     Dosage: 1TAB*1
  8. METFORMIN [Concomitant]
     Active Substance: METFORMIN HYDROCHLORIDE
     Indication: Product used for unknown indication
     Dosage: 1000MG*1
  9. DUOWELL [Concomitant]
     Indication: Product used for unknown indication
     Dosage: 80/5 1TAB*1,
  10. METHOTREXATE [Concomitant]
     Active Substance: METHOTREXATE
     Indication: Product used for unknown indication
     Dosage: 10MG*1/ WEEK?5MG*1/ WEEK

REACTIONS (3)
  - Interstitial lung disease [Unknown]
  - COVID-19 pneumonia [Unknown]
  - Angina unstable [Unknown]

NARRATIVE: CASE EVENT DATE: 20210601
